FAERS Safety Report 5039296-4 (Version None)
Quarter: 2006Q2

REPORT INFORMATION
  Report Type: 
  Country: None (occurrence: None)
  Receive Date: 20060629
  Receipt Date: 20060620
  Transmission Date: 20061013
  Serious: Yes (Death, Hospitalization)
  Sender: FDA-Public Use
  Company Number: US-SANOFI-SYNTHELABO-A03200604091

PATIENT
  Sex: Female
  Weight: 63.49 kg

DRUGS (11)
  1. SPIRIVA [Concomitant]
     Dosage: UNK
     Route: 065
  2. ADVAIR DISKUS 100/50 [Concomitant]
     Dosage: UNK
     Route: 065
  3. ALBUTEROL [Concomitant]
     Dosage: UNK
     Route: 065
  4. REMERON [Concomitant]
     Dosage: UNK
     Route: 065
  5. LOPRESSOR [Concomitant]
     Dosage: UNK
     Route: 065
  6. LISINOPRIL [Concomitant]
     Dosage: UNK
     Route: 065
  7. CELEBREX [Concomitant]
     Dosage: UNK
     Route: 065
  8. OXYCONTIN [Concomitant]
     Dosage: UNK
     Route: 065
  9. SOMA [Concomitant]
     Dosage: UNK
     Route: 065
  10. PRAVACHOL [Suspect]
     Dosage: UNK
     Route: 048
  11. PLAVIX [Suspect]
     Indication: CARDIOMYOPATHY ACUTE
     Route: 048

REACTIONS (1)
  - MYOCARDIAL INFARCTION [None]
